FAERS Safety Report 4749820-4 (Version None)
Quarter: 2005Q3

REPORT INFORMATION
  Report Type: 
  Country: None (occurrence: None)
  Receive Date: 20050819
  Receipt Date: 20050819
  Transmission Date: 20060218
  Serious: Yes (Other)
  Sender: FDA-Public Use
  Company Number: None

PATIENT
  Age: 36 Year
  Sex: Female
  Weight: 67.1324 kg

DRUGS (4)
  1. ADRIAMYCIN PFS [Suspect]
     Indication: BREAST CANCER
     Dosage: 60MG/M2 Q 2 WEEKS X 4 CYCLES
     Dates: start: 19980710, end: 19980821
  2. CYTOXAN [Suspect]
     Indication: BREAST CANCER
     Dosage: 600MG/M2 Q 2 WEEKS X 4 CYCLES
     Dates: start: 19980710, end: 19980821
  3. TAXOL [Suspect]
     Indication: BREAST CANCER
     Dosage: 175MG/M2 Q2 WEEKS X 4 CYCLES
     Dates: start: 19980904, end: 19981016
  4. TAMOXIFEN CITRATE [Suspect]
     Indication: BREAST CANCER
     Dosage: 20MG PO DAILY
     Route: 048
     Dates: start: 19990114

REACTIONS (10)
  - BREAST CANCER METASTATIC [None]
  - BREAST CANCER RECURRENT [None]
  - HAEMANGIOMA OF LIVER [None]
  - LUNG NEOPLASM [None]
  - METASTASES TO BONE [None]
  - METASTASES TO LIVER [None]
  - METASTASES TO LYMPH NODES [None]
  - OESTROGEN RECEPTOR ASSAY POSITIVE [None]
  - PROGESTERONE RECEPTOR ASSAY POSITIVE [None]
  - TREATMENT NONCOMPLIANCE [None]
